FAERS Safety Report 7422215-0 (Version None)
Quarter: 2011Q2

REPORT INFORMATION
  Report Type: 
  Country: None (occurrence: None)
  Receive Date: 20110418
  Receipt Date: 20110405
  Transmission Date: 20111010
  Serious: Yes (Hospitalization, Other)
  Sender: FDA-Public Use
  Company Number: US-MYLANLABS-2011S1007302

PATIENT
  Age: 55 Year
  Sex: Male

DRUGS (3)
  1. PAMELOR [Interacting]
     Route: 065
     Dates: start: 20050118
  2. METHADONE [Suspect]
     Indication: PAIN
     Route: 065
     Dates: start: 20040322
  3. METHADONE [Interacting]
     Route: 065
     Dates: start: 20040322

REACTIONS (4)
  - SEPTIC SHOCK [None]
  - ELECTROCARDIOGRAM QT PROLONGED [None]
  - DRUG INTERACTION [None]
  - RENAL FAILURE ACUTE [None]
